FAERS Safety Report 20488027 (Version 1)
Quarter: 2022Q1

REPORT INFORMATION
  Report Type: Spontaneous
  Country: IE (occurrence: IE)
  Receive Date: 20220218
  Receipt Date: 20220218
  Transmission Date: 20220423
  Serious: Yes (Hospitalization, Other)
  Sender: FDA-Public Use
  Company Number: IE-009507513-2202IRL002324

PATIENT

DRUGS (4)
  1. HUMAN IMMUNOGLOBULIN G [Suspect]
     Active Substance: HUMAN IMMUNOGLOBULIN G
     Indication: Product used for unknown indication
     Route: 042
  2. KEYTRUDA [Suspect]
     Active Substance: PEMBROLIZUMAB
     Indication: Lung neoplasm malignant
     Dosage: STRENGTH 100 MG/4 ML TREATMENT WITH THE 3RD CHEMOTHERAPY
     Route: 065
     Dates: start: 202106
  3. KEYTRUDA [Suspect]
     Active Substance: PEMBROLIZUMAB
     Dosage: THE 2ND TIME, WITH THE 4TH CHEMOTHERAPY
     Route: 065
  4. CORTISONE [Suspect]
     Active Substance: CORTISONE
     Route: 065

REACTIONS (8)
  - Myasthenia gravis [Not Recovered/Not Resolved]
  - Myositis [Not Recovered/Not Resolved]
  - Guillain-Barre syndrome [Not Recovered/Not Resolved]
  - Muscle atrophy [Unknown]
  - Respiratory failure [Unknown]
  - Drug ineffective [Unknown]
  - Diplegia [Unknown]
  - Monoplegia [Unknown]
